FAERS Safety Report 23680255 (Version 1)
Quarter: 2024Q1

REPORT INFORMATION
  Report Type: Report from Study
  Country: US (occurrence: US)
  Receive Date: 20240327
  Receipt Date: 20240327
  Transmission Date: 20240409
  Serious: Yes (Hospitalization)
  Sender: FDA-Public Use
  Company Number: US-ABBVIE-5691252

PATIENT
  Age: 71 Year
  Sex: Female
  Weight: 66.6 kg

DRUGS (1)
  1. SKYRIZI [Suspect]
     Active Substance: RISANKIZUMAB-RZAA
     Indication: Psoriasis
     Route: 058
     Dates: start: 20240203

REACTIONS (3)
  - Urinary tract infection [Recovering/Resolving]
  - Pelvic pain [Unknown]
  - Malaise [Unknown]

NARRATIVE: CASE EVENT DATE: 20240304
